FAERS Safety Report 5882209-3 (Version None)
Quarter: 2008Q3

REPORT INFORMATION
  Report Type: 
  Country: None (occurrence: None)
  Receive Date: 20080912
  Receipt Date: 20080729
  Transmission Date: 20090109
  Serious: No
  Sender: FDA-Public Use
  Company Number: US-ABBOTT-08P-163-0466650-00

PATIENT
  Age: 31 Year
  Sex: Female

DRUGS (3)
  1. HUMIRA [Suspect]
     Indication: CROHN'S DISEASE
     Dosage: 160 MG, DAY 1
     Route: 058
  2. HUMIRA [Suspect]
     Dosage: 80 MG ON DAY 15
     Route: 058
  3. HUMIRA [Suspect]
     Dosage: 40 MG ON DAY 29
     Route: 058

REACTIONS (1)
  - ACCIDENTAL OVERDOSE [None]
